FAERS Safety Report 8357795-4 (Version None)
Quarter: 2012Q2

REPORT INFORMATION
  Report Type: 
  Country: None (occurrence: None)
  Receive Date: 20120514
  Receipt Date: 20110406
  Transmission Date: 20120825
  Serious: No
  Sender: FDA-Public Use
  Company Number: US-ALEXION-A201100490

PATIENT
  Sex: Female

DRUGS (4)
  1. EXJADE [Concomitant]
     Dosage: 1000 MG QD
     Dates: start: 20110412
  2. EXJADE [Concomitant]
     Indication: BLOOD IRON INCREASED
     Dosage: 1500 MG QD
     Dates: start: 20110301, end: 20110401
  3. ARANESP [Concomitant]
     Indication: ANAEMIA
     Dosage: 200 MG QD
     Route: 058
  4. SOLIRIS [Suspect]
     Indication: PAROXYSMAL NOCTURNAL HAEMOGLOBINURIA
     Dosage: 900 MG Q2W
     Route: 042

REACTIONS (9)
  - HAEMOGLOBIN DECREASED [None]
  - DYSPNOEA [None]
  - DIARRHOEA [None]
  - LACTOSE INTOLERANCE [None]
  - FATIGUE [None]
  - HYPERSOMNIA [None]
  - LIVER FUNCTION TEST ABNORMAL [None]
  - ABDOMINAL RIGIDITY [None]
  - BLOOD IRON INCREASED [None]
